FAERS Safety Report 18505264 (Version 1)
Quarter: 2020Q4

REPORT INFORMATION
  Report Type: Spontaneous
  Country: LB (occurrence: LB)
  Receive Date: 20201116
  Receipt Date: 20201116
  Transmission Date: 20210114
  Serious: Yes (Death, Hospitalization, Other)
  Sender: FDA-Public Use
  Company Number: LB-ASTRAZENECA-2020SF48964

PATIENT
  Age: 72 Year
  Sex: Male

DRUGS (4)
  1. BRILINTA [Suspect]
     Active Substance: TICAGRELOR
     Route: 048
  2. ASPIRIN. [Concomitant]
     Active Substance: ASPIRIN
  3. XIGDUO XR [Suspect]
     Active Substance: DAPAGLIFLOZIN PROPANEDIOL\METFORMIN HYDROCHLORIDE
     Indication: DIABETES MELLITUS INADEQUATE CONTROL
     Route: 048
     Dates: start: 20201105, end: 20201109
  4. CONCOR [Concomitant]
     Active Substance: BISOPROLOL FUMARATE

REACTIONS (6)
  - Death [Fatal]
  - Urinary tract infection [Unknown]
  - Anuria [Unknown]
  - Lactic acidosis [Unknown]
  - Dyspnoea [Unknown]
  - Sepsis [Unknown]
